FAERS Safety Report 9981480 (Version 1)
Quarter: 2014Q1

REPORT INFORMATION
  Report Type: Spontaneous
  Country: US (occurrence: None)
  Receive Date: 20140128
  Receipt Date: 20140128
  Transmission Date: 20141002
  Serious: Yes (Hospitalization)
  Sender: FDA-Public Use
  Company Number: A-NJ2013-88768

PATIENT
  Age: 60 Year
  Sex: Female

DRUGS (1)
  1. TRACLEER (BOSENTAN) TABLET [Suspect]
     Indication: PULMONARY HYPERTENSION
     Route: 048

REACTIONS (1)
  - Chest pain [None]
